FAERS Safety Report 8819546 (Version 9)
Quarter: 2013Q3

REPORT INFORMATION
  Report Type: Spontaneous
  Country: US (occurrence: US)
  Receive Date: 20120930
  Receipt Date: 20130819
  Transmission Date: 20140515
  Serious: Yes (Other)
  Sender: FDA-Public Use
  Company Number: US-009507513-1209USA012025

PATIENT
  Age: 54 Year
  Sex: Male
  Weight: 92.97 kg

DRUGS (7)
  1. PEGINTRON [Suspect]
     Indication: HEPATITIS C
     Dosage: REDIPEN,150 MICROGRAM, QW
     Route: 058
     Dates: start: 20120913
  2. REBETOL [Suspect]
     Indication: HEPATITIS C
     Dosage: 600 MG, BID
     Route: 048
     Dates: start: 20120913
  3. VICTRELIS [Suspect]
     Indication: HEPATITIS C
     Dosage: 800 MG, TID
     Route: 048
     Dates: start: 20121012
  4. ZOFRAN [Concomitant]
     Indication: NAUSEA
     Dosage: 4 MG Q 6 HRS PRN
     Dates: start: 20121114
  5. DIOVAN [Concomitant]
  6. LEVOTHYROXINE SODIUM [Concomitant]
  7. NASONEX [Concomitant]

REACTIONS (51)
  - Hypothyroidism [Unknown]
  - Hypothyroidism [Unknown]
  - Hypothyroidism [Unknown]
  - Pancytopenia [Unknown]
  - Overdose [Unknown]
  - Syncope [Unknown]
  - Pyrexia [Unknown]
  - Chills [Unknown]
  - Fatigue [Not Recovered/Not Resolved]
  - Dry skin [Unknown]
  - Pruritus [Unknown]
  - Weight decreased [Unknown]
  - Fatigue [Unknown]
  - Malaise [Not Recovered/Not Resolved]
  - Fatigue [Unknown]
  - Pruritus [Unknown]
  - Dysgeusia [Not Recovered/Not Resolved]
  - Dry mouth [Unknown]
  - Fatigue [Unknown]
  - Dysgeusia [Unknown]
  - Decreased appetite [Unknown]
  - Feeling abnormal [Unknown]
  - Sinusitis [Unknown]
  - Diarrhoea [Unknown]
  - Fatigue [Unknown]
  - Anaemia [Not Recovered/Not Resolved]
  - Anaemia [Unknown]
  - Depression [Unknown]
  - Feeling cold [Unknown]
  - Decreased appetite [Unknown]
  - Sinusitis [Unknown]
  - Muscle spasms [Unknown]
  - Pollakiuria [Unknown]
  - Weight decreased [Unknown]
  - Chills [Unknown]
  - Influenza like illness [Unknown]
  - Nausea [Unknown]
  - Dysgeusia [Unknown]
  - Anaemia [Unknown]
  - Haemoglobin decreased [Unknown]
  - Thrombocytopenia [Unknown]
  - Platelet count decreased [Unknown]
  - Fatigue [Unknown]
  - Pollakiuria [Unknown]
  - Fatigue [Unknown]
  - Weight decreased [Unknown]
  - Syncope [Unknown]
  - Decreased appetite [Unknown]
  - Insomnia [Unknown]
  - Pruritus [Unknown]
  - Dizziness [Unknown]
